FAERS Safety Report 24764938 (Version 2)
Quarter: 2025Q1

REPORT INFORMATION
  Report Type: Report from Study
  Country: CA (occurrence: None)
  Receive Date: 20241223
  Receipt Date: 20250206
  Transmission Date: 20250408
  Serious: Yes (Other)
  Sender: ORION
  Company Number: CA-PFIZER INC-202400329597

PATIENT
  Age: 61 Year
  Sex: Male
  Weight: 74 kg

DRUGS (12)
  1. METHOTREXATE [Suspect]
     Active Substance: METHOTREXATE
     Indication: Product used for unknown indication
  2. DESOXIMETASONE [Suspect]
     Active Substance: DESOXIMETASONE
     Indication: Product used for unknown indication
  3. RENFLEXIS [Suspect]
     Active Substance: INFLIXIMAB-ABDA
     Indication: Psoriatic arthropathy
     Dosage: CYCLICAL
     Dates: start: 20230526
  4. RENFLEXIS [Suspect]
     Active Substance: INFLIXIMAB-ABDA
     Dosage: CYCLICAL
     Dates: start: 20231004
  5. RENFLEXIS [Suspect]
     Active Substance: INFLIXIMAB-ABDA
     Dates: start: 20240321
  6. RENFLEXIS [Suspect]
     Active Substance: INFLIXIMAB-ABDA
     Dates: start: 20240425
  7. RENFLEXIS [Suspect]
     Active Substance: INFLIXIMAB-ABDA
     Dates: start: 20240711
  8. RENFLEXIS [Suspect]
     Active Substance: INFLIXIMAB-ABDA
     Dosage: CYCLICAL
  9. RENFLEXIS [Suspect]
     Active Substance: INFLIXIMAB-ABDA
  10. RENFLEXIS [Suspect]
     Active Substance: INFLIXIMAB-ABDA
     Dosage: CYCLICAL
     Dates: start: 20230526
  11. RENFLEXIS [Suspect]
     Active Substance: INFLIXIMAB-ABDA
     Dosage: CYCLICAL
     Dates: start: 20240812
  12. RENFLEXIS [Suspect]
     Active Substance: INFLIXIMAB-ABDA
     Dosage: CYCLICAL
     Dates: start: 20241105

REACTIONS (6)
  - Arthralgia [Not Recovered/Not Resolved]
  - Hypertension [Not Recovered/Not Resolved]
  - Musculoskeletal stiffness [Not Recovered/Not Resolved]
  - Tooth loss [Not Recovered/Not Resolved]
  - Vital functions abnormal [Unknown]
  - Tooth fracture [Unknown]

NARRATIVE: CASE EVENT DATE: 20240321
